FAERS Safety Report 24547760 (Version 1)
Quarter: 2024Q4

REPORT INFORMATION
  Report Type: Report from Study
  Country: US (occurrence: US)
  Receive Date: 20241025
  Receipt Date: 20241025
  Transmission Date: 20250114
  Serious: Yes (Hospitalization)
  Sender: ACCORD
  Company Number: US-Accord-451988

PATIENT
  Age: 68 Year
  Sex: Female
  Weight: 80.29 kg

DRUGS (1)
  1. CLOZAPINE [Suspect]
     Active Substance: CLOZAPINE
     Indication: Schizoaffective disorder bipolar type
     Dosage: 300MG, ORAL, EVERY NIGHT AT BEDTIME
     Route: 048

REACTIONS (2)
  - Urinary tract infection [Unknown]
  - Anxiety [Unknown]
